FAERS Safety Report 7318334-X (Version None)
Quarter: 2011Q1

REPORT INFORMATION
  Report Type: 
  Country: None (occurrence: None)
  Receive Date: 20110228
  Receipt Date: 20110224
  Transmission Date: 20110831
  Serious: Yes (Hospitalization, Other)
  Sender: FDA-Public Use
  Company Number: US-SHIRE-SPV1-2011-00327

PATIENT
  Sex: Female
  Weight: 45.351 kg

DRUGS (4)
  1. INTUNIV [Suspect]
     Dosage: 2 MG, 1X/DAY:QD
     Route: 048
     Dates: start: 20101001, end: 20101001
  2. INTUNIV [Suspect]
     Indication: ATTENTION DEFICIT/HYPERACTIVITY DISORDER
     Dosage: 1 MG, 1X/DAY:QD
     Route: 048
     Dates: start: 20100901, end: 20101001
  3. INTUNIV [Suspect]
     Dosage: 2 MG, 1X/DAY:QD
     Route: 048
     Dates: start: 20101001, end: 20101001
  4. INTUNIV [Suspect]
     Dosage: 3 MG, 1X/DAY:QD
     Route: 048
     Dates: start: 20101001, end: 20101001

REACTIONS (8)
  - BLOOD PRESSURE DECREASED [None]
  - DRUG EFFECT INCREASED [None]
  - CARDIAC MURMUR [None]
  - SYNCOPE [None]
  - CONVULSION [None]
  - ATRIOVENTRICULAR BLOCK [None]
  - BLOOD PRESSURE INCREASED [None]
  - ORTHOSTATIC INTOLERANCE [None]
